FAERS Safety Report 7090447-X (Version None)
Quarter: 2010Q4

REPORT INFORMATION
  Report Type: 
  Country: None (occurrence: None)
  Receive Date: 20101012
  Receipt Date: 20100716
  Transmission Date: 20110411
  Serious: Yes (Other)
  Sender: FDA-Public Use
  Company Number: 1000014083

PATIENT
  Age: 30 Year
  Sex: Female
  Weight: 87.54 kg

DRUGS (2)
  1. LEXAPRO [Suspect]
     Indication: ANXIETY
     Dosage: 10 MG (10 MG, 1 IN 1 D)
     Dates: start: 20100414, end: 20100428
  2. XANAX [Concomitant]

REACTIONS (1)
  - SUICIDAL IDEATION [None]
